FAERS Safety Report 21736592 (Version 2)
Quarter: 2023Q1

REPORT INFORMATION
  Report Type: Spontaneous
  Country: US (occurrence: US)
  Receive Date: 20221216
  Receipt Date: 20230218
  Transmission Date: 20230418
  Serious: No
  Sender: FDA-Public Use
  Company Number: US-JNJFOC-20221220780

PATIENT
  Sex: Female

DRUGS (2)
  1. DARZALEX FASPRO [Suspect]
     Active Substance: DARATUMUMAB\HYALURONIDASE-FIHJ
     Indication: Product used for unknown indication
     Route: 058
  2. COVID-19 VACCINE [Concomitant]
     Indication: Prophylaxis
     Dosage: 1ST BOOSTER DOSE ON 16-FEB-2020, 2ND BOOSTER DOSE ON 09-FEB-2021, 3RD BOOSTER DOSE ON 13-JUL-2021 AN
     Route: 065

REACTIONS (3)
  - Muscular weakness [Unknown]
  - Fall [Unknown]
  - Joint injury [Unknown]
